FAERS Safety Report 5609898-2 (Version None)
Quarter: 2008Q1

REPORT INFORMATION
  Report Type: 
  Country: None (occurrence: None)
  Receive Date: 20080131
  Receipt Date: 20080114
  Transmission Date: 20080703
  Serious: No
  Sender: FDA-Public Use
  Company Number: US-BAYER-200715582NA

PATIENT
  Age: 31 Year
  Sex: Female
  Weight: 77 kg

DRUGS (3)
  1. MIRENA [Suspect]
     Indication: CONTRACEPTION
     Route: 015
     Dates: start: 20070714, end: 20071113
  2. LOESTRIN 1.5/30 [Concomitant]
  3. LOESTRIN 1.5/30 [Concomitant]
     Dates: start: 19970101, end: 20070101

REACTIONS (3)
  - ABDOMINAL PAIN LOWER [None]
  - IUCD COMPLICATION [None]
  - MENSTRUAL DISORDER [None]
